FAERS Safety Report 17472982 (Version 1)
Quarter: 2020Q1

REPORT INFORMATION
  Report Type: Spontaneous
  Country: JP (occurrence: JP)
  Receive Date: 20200228
  Receipt Date: 20200228
  Transmission Date: 20200409
  Serious: Yes (Other)
  Sender: FDA-Public Use
  Company Number: NVSJ2020JP002456

PATIENT

DRUGS (1)
  1. NEORAL [Suspect]
     Active Substance: CYCLOSPORINE
     Indication: GLOMERULONEPHRITIS MEMBRANOUS
     Dosage: UNK
     Route: 048

REACTIONS (5)
  - Peripheral swelling [Unknown]
  - Erythema [Unknown]
  - Colon cancer [Recovered/Resolved]
  - Occult blood [Recovered/Resolved]
  - Panniculitis [Recovered/Resolved]
